FAERS Safety Report 7698931-2 (Version None)
Quarter: 2011Q3

REPORT INFORMATION
  Report Type: 
  Country: None (occurrence: None)
  Receive Date: 20110819
  Receipt Date: 20110809
  Transmission Date: 20111222
  Serious: Yes (Hospitalization)
  Sender: FDA-Public Use
  Company Number: US-ELI_LILLY_AND_COMPANY-US201106002017

PATIENT
  Sex: Female

DRUGS (23)
  1. VITAMIN D [Concomitant]
     Dosage: 50000 IU, WEEKLY (1/W)
  2. LASIX [Concomitant]
  3. PHENERGAN HCL [Concomitant]
     Dosage: UNK UNK, PRN
  4. FORTEO [Suspect]
     Dosage: 20 UG, QD
  5. MULTI-VITAMIN [Concomitant]
  6. NORVASC [Concomitant]
  7. ASPIRIN [Concomitant]
     Dosage: 81 MG, UNK
  8. ATARAX [Concomitant]
     Dosage: UNK UNK, PRN
  9. COREG [Concomitant]
  10. PLAVIX [Concomitant]
  11. LEVEMIR [Concomitant]
     Dosage: 40 IU, QD
  12. SYNTHROID [Concomitant]
  13. FORTEO [Suspect]
     Indication: OSTEOPOROSIS
     Dosage: 20 UG, QD
     Dates: start: 20110401
  14. NOVOLOG [Concomitant]
     Dosage: 10 IU, TID
  15. IMDUR [Concomitant]
  16. PEPCID [Concomitant]
  17. FORTEO [Suspect]
     Dosage: 20 UG, QD
  18. CYANOCOBALAMIN [Concomitant]
  19. LOTENSIN [Concomitant]
  20. POTASSIUM ACETATE [Concomitant]
  21. FORTEO [Suspect]
     Dosage: 20 UG, QD
  22. AMLODIPINE [Concomitant]
  23. CALCIUM CARBONATE [Concomitant]
     Indication: MINERAL SUPPLEMENTATION
     Dosage: UNK

REACTIONS (6)
  - PAIN IN EXTREMITY [None]
  - BLOOD PRESSURE INCREASED [None]
  - RECTAL HAEMORRHAGE [None]
  - VISION BLURRED [None]
  - HEART RATE DECREASED [None]
  - ASTHENIA [None]
